FAERS Safety Report 7335791-3 (Version None)
Quarter: 2011Q1

REPORT INFORMATION
  Report Type: 
  Country: None (occurrence: None)
  Receive Date: 20110307
  Receipt Date: 20110302
  Transmission Date: 20110831
  Serious: Yes (Death, Hospitalization)
  Sender: FDA-Public Use
  Company Number: US-SANOFI-AVENTIS-2011SA013438

PATIENT
  Age: 60 Year
  Sex: Male

DRUGS (1)
  1. MULTAQ [Suspect]
     Indication: ATRIAL FIBRILLATION
     Route: 048
     Dates: start: 20080101

REACTIONS (5)
  - DYSPHAGIA [None]
  - DECREASED APPETITE [None]
  - MYOCARDIAL INFARCTION [None]
  - DYSPNOEA [None]
  - ASPIRATION [None]
